FAERS Safety Report 4451174-8 (Version None)
Quarter: 2004Q3

REPORT INFORMATION
  Report Type: 
  Country: None (occurrence: None)
  Receive Date: 20040915
  Receipt Date: 20040915
  Transmission Date: 20050211
  Serious: Yes (Life-Threatening, Hospitalization)
  Sender: FDA-Public Use
  Company Number: None

PATIENT
  Age: 66 Year
  Sex: Male
  Weight: 114.3065 kg

DRUGS (9)
  1. CYTOXAN [Suspect]
     Indication: NON-HODGKIN'S LYMPHOMA
     Dosage: CYTOXAN 1822 MG IV
     Route: 042
     Dates: start: 20040310
  2. CYTOXAN [Suspect]
     Indication: NON-HODGKIN'S LYMPHOMA
     Dosage: CYTOXAN 1822 MG IV
     Route: 042
     Dates: start: 20040331
  3. ADRIAMYCIN PFS [Suspect]
     Indication: NON-HODGKIN'S LYMPHOMA
     Dosage: IV ADRIA 122MG
     Route: 042
     Dates: start: 20040310
  4. ADRIAMYCIN PFS [Suspect]
     Indication: NON-HODGKIN'S LYMPHOMA
     Dosage: IV ADRIA 122MG
     Route: 042
     Dates: start: 20040331
  5. VINCRISTINE [Suspect]
     Indication: NON-HODGKIN'S LYMPHOMA
     Dosage: VINCRISTINE 2MG IV
     Route: 042
     Dates: start: 20040310, end: 20040331
  6. PREDNISONE [Suspect]
     Indication: NON-HODGKIN'S LYMPHOMA
     Dosage: IV PREDNISONE 100 MG
     Route: 042
     Dates: start: 20040303
  7. PREDNISONE [Suspect]
     Indication: NON-HODGKIN'S LYMPHOMA
     Dosage: IV PREDNISONE 100 MG
     Route: 042
     Dates: start: 20040308
  8. RITUXIMAB [Suspect]
     Indication: NON-HODGKIN'S LYMPHOMA
     Dosage: IV RITUXIMAB 934 MG
     Route: 042
     Dates: start: 20040303
  9. RITUXIMAB [Suspect]
     Indication: NON-HODGKIN'S LYMPHOMA
     Dosage: IV RITUXIMAB 934 MG
     Route: 042
     Dates: start: 20040308

REACTIONS (5)
  - ASTHENIA [None]
  - CARDIOTOXICITY [None]
  - CEREBROVASCULAR ACCIDENT [None]
  - CIRCULATORY COLLAPSE [None]
  - MULTIPLE GATED ACQUISITION SCAN ABNORMAL [None]
